FAERS Safety Report 5276402-0 (Version None)
Quarter: 2007Q1

REPORT INFORMATION
  Report Type: 
  Country: None (occurrence: None)
  Receive Date: 20061213
  Receipt Date: 20040115
  Transmission Date: 20070707
  Serious: No
  Sender: FDA-Public Use
  Company Number: 2004UW00683

PATIENT

DRUGS (3)
  1. SEROQUEL [Suspect]
     Dosage: 150 MG PO
     Route: 048
  2. PAXIL [Concomitant]
  3. PROVIGIL [Concomitant]

REACTIONS (1)
  - GRAND MAL CONVULSION [None]
